FAERS Safety Report 20422064 (Version 26)
Quarter: 2023Q4

REPORT INFORMATION
  Report Type: Report from Study
  Country: TW (occurrence: None)
  Receive Date: 20220203
  Receipt Date: 20231103
  Transmission Date: 20240110
  Serious: Yes (Hospitalization)
  Sender: FDA-Public Use
  Company Number: TW-ROCHE-3002527

PATIENT
  Age: 68 Year
  Sex: Male
  Weight: 39 kg

DRUGS (93)
  1. ATEZOLIZUMAB [Suspect]
     Active Substance: ATEZOLIZUMAB
     Indication: Hepatocellular carcinoma
     Dosage: DOSE LAST STUDY DRUG ADMIN PRIOR AE IS 1200 MG: 05/JAN/2022?START DATE OF MOST RECENT DOSE OF STUDY
     Route: 041
     Dates: start: 20210728
  2. BEVACIZUMAB [Suspect]
     Active Substance: BEVACIZUMAB
     Indication: Hepatocellular carcinoma
     Dosage: DOSE LAST STUDY DRUG ADMIN PRIOR AE IS 739.5 MG: 05/JAN/2022?START DATE OF MOST RECENT DOSE OF STUDY
     Route: 042
     Dates: start: 20210728
  3. TOCILIZUMAB [Suspect]
     Active Substance: TOCILIZUMAB
     Indication: Hepatocellular carcinoma
     Route: 042
     Dates: start: 20210728
  4. ZOLPIDEM TARTRATE [Concomitant]
     Active Substance: ZOLPIDEM TARTRATE
     Indication: Insomnia
     Dosage: YES
     Route: 048
     Dates: start: 20220118
  5. BARACLUDE [Concomitant]
     Active Substance: ENTECAVIR
     Indication: Chronic hepatitis B
     Dosage: YES
     Route: 048
     Dates: start: 20210722, end: 20210922
  6. FERRUM HAUSMANN [FERRIC HYDROXIDE POLYMALTOSE COMPLEX] [Concomitant]
     Indication: Iron deficiency anaemia
     Dosage: YES
     Route: 048
     Dates: start: 20210722, end: 20220118
  7. OXYCODONE HYDROCHLORIDE [Concomitant]
     Active Substance: OXYCODONE HYDROCHLORIDE
     Indication: Abdominal pain
     Dosage: YES
     Route: 048
     Dates: start: 20210728
  8. OXYCODONE HYDROCHLORIDE [Concomitant]
     Active Substance: OXYCODONE HYDROCHLORIDE
     Route: 048
     Dates: start: 20220222, end: 20220222
  9. OXYCODONE HYDROCHLORIDE [Concomitant]
     Active Substance: OXYCODONE HYDROCHLORIDE
     Dosage: 1 CAPSULE
     Route: 048
     Dates: start: 20220214
  10. OXYCODONE HYDROCHLORIDE [Concomitant]
     Active Substance: OXYCODONE HYDROCHLORIDE
     Dosage: 1 CAPSULE
     Route: 048
     Dates: start: 20220608, end: 20220916
  11. OXYCODONE HYDROCHLORIDE [Concomitant]
     Active Substance: OXYCODONE HYDROCHLORIDE
     Route: 048
     Dates: start: 20220721, end: 20220927
  12. LORAZEPAM [Concomitant]
     Active Substance: LORAZEPAM
     Indication: Insomnia
     Dosage: YES
     Route: 048
     Dates: start: 20210804
  13. SINPHARDERM [Concomitant]
     Indication: Palmar-plantar erythrodysaesthesia syndrome
     Route: 061
     Dates: start: 20210811
  14. TRIAMCINOLONE ACETONIDE [Concomitant]
     Active Substance: TRIAMCINOLONE ACETONIDE
     Indication: Stomatitis
     Route: 061
     Dates: start: 20210811
  15. ACETAMINOPHEN [Concomitant]
     Active Substance: ACETAMINOPHEN
     Indication: Gingivitis
     Route: 048
     Dates: start: 20210908
  16. ACETAMINOPHEN [Concomitant]
     Active Substance: ACETAMINOPHEN
     Indication: Pyrexia
     Dates: start: 20220905, end: 20220927
  17. TAITA NO.5 [Concomitant]
     Indication: Dysuria
     Route: 042
     Dates: start: 20211101
  18. TAMSULOSIN HYDROCHLORIDE [Concomitant]
     Active Substance: TAMSULOSIN HYDROCHLORIDE
     Indication: Dysuria
     Route: 048
     Dates: start: 20211101, end: 20211214
  19. TAMSULOSIN HYDROCHLORIDE [Concomitant]
     Active Substance: TAMSULOSIN HYDROCHLORIDE
     Indication: Benign prostatic hyperplasia
     Dates: start: 20211215, end: 20220118
  20. TAMSULOSIN HYDROCHLORIDE [Concomitant]
     Active Substance: TAMSULOSIN HYDROCHLORIDE
     Route: 048
     Dates: start: 20220127
  21. TAMSULOSIN HYDROCHLORIDE [Concomitant]
     Active Substance: TAMSULOSIN HYDROCHLORIDE
     Dates: start: 20220303
  22. ZINC OXIDE [Concomitant]
     Active Substance: ZINC OXIDE
     Route: 061
     Dates: start: 20211101
  23. ZINC OXIDE [Concomitant]
     Active Substance: ZINC OXIDE
     Dosage: OINT 20% 28.4 G /TUBE
     Dates: start: 20220121, end: 20220203
  24. SENNAPUR [Concomitant]
     Indication: Constipation
     Route: 048
     Dates: start: 20211103
  25. OXYBUTYNIN CHLORIDE [Concomitant]
     Active Substance: OXYBUTYNIN CHLORIDE
     Indication: Dysuria
     Route: 048
     Dates: start: 20211206, end: 20220102
  26. PACKED RBC [Concomitant]
     Indication: Anaemia
     Dosage: 2 U
     Route: 042
     Dates: start: 20211216, end: 20211216
  27. ERTAPENEM [Concomitant]
     Active Substance: ERTAPENEM
     Dates: start: 20220123
  28. FLUCONAZOLE [Concomitant]
     Active Substance: FLUCONAZOLE
     Dates: start: 20220129
  29. PIPERACILLIN SODIUM\TAZOBACTAM SODIUM [Concomitant]
     Active Substance: PIPERACILLIN SODIUM\TAZOBACTAM SODIUM
     Indication: Pyrexia
     Dates: start: 20220203
  30. PIPERACILLIN SODIUM\TAZOBACTAM SODIUM [Concomitant]
     Active Substance: PIPERACILLIN SODIUM\TAZOBACTAM SODIUM
     Dosage: PIPERACILLIN 2000 MG, TAZOBACTAM 250 MG (TAZOCIN (BASED ON PIPERACILLIN CONTENT) 2000 MG/VIAL)
     Route: 042
     Dates: start: 20220203, end: 20220204
  31. PIPERACILLIN SODIUM\TAZOBACTAM SODIUM [Concomitant]
     Active Substance: PIPERACILLIN SODIUM\TAZOBACTAM SODIUM
     Dosage: PIPERACILLIN 2000 MG, TAZOBACTAM 250 MG (TAZOCIN (BASED ON PIPERACILLIN CONTENT) 2000 MG/VIAL)
     Route: 042
     Dates: start: 20220205, end: 20220209
  32. MONTMORILLONITE [Concomitant]
     Active Substance: MONTMORILLONITE
     Indication: Diarrhoea
     Route: 048
     Dates: start: 20220105, end: 20220117
  33. MONTMORILLONITE [Concomitant]
     Active Substance: MONTMORILLONITE
     Route: 048
     Dates: start: 20220223, end: 20220224
  34. MONTMORILLONITE [Concomitant]
     Active Substance: MONTMORILLONITE
     Route: 048
     Dates: start: 20220225, end: 20220315
  35. MONTMORILLONITE [Concomitant]
     Active Substance: MONTMORILLONITE
     Route: 048
     Dates: start: 20220906, end: 20220927
  36. TRANEXAMIC ACID [Concomitant]
     Active Substance: TRANEXAMIC ACID
     Indication: Epistaxis
     Dates: start: 20220105, end: 20220112
  37. BENAZON [Concomitant]
     Indication: Pruritus
     Dosage: MEDICATION DOSE 1 OTHER
     Route: 061
     Dates: start: 20211215, end: 20220104
  38. CHLORPHENIRAMINE MALEATE [Concomitant]
     Active Substance: CHLORPHENIRAMINE MALEATE
     Indication: Pruritus
     Route: 061
     Dates: start: 20211103, end: 20220128
  39. CHLORPHENIRAMINE MALEATE [Concomitant]
     Active Substance: CHLORPHENIRAMINE MALEATE
     Route: 061
     Dates: start: 20220721, end: 20220920
  40. OXBU [Concomitant]
     Indication: Prophylaxis
     Route: 048
     Dates: start: 20211206, end: 20220102
  41. LEUKOCYTE POOR RED CELLS [Concomitant]
     Indication: Anaemia
     Route: 042
     Dates: start: 20211216, end: 20211216
  42. TRANSAMIN [Concomitant]
     Active Substance: TRANEXAMIC ACID
     Indication: Prophylaxis
     Dosage: 250 MG/CAP
     Route: 048
     Dates: start: 20220116, end: 20220117
  43. TRANSAMIN [Concomitant]
     Active Substance: TRANEXAMIC ACID
     Dosage: 250 MG/CAP
     Dates: start: 20220202, end: 20220202
  44. TRANSAMIN [Concomitant]
     Active Substance: TRANEXAMIC ACID
     Dates: start: 20220303, end: 20220318
  45. FAT EMULSION NOS [Concomitant]
     Active Substance: EGG PHOSPHOLIPIDS\SAFFLOWER OIL\SOYBEAN OIL
     Indication: Decreased appetite
     Route: 042
     Dates: start: 20220117, end: 20220203
  46. BISACODYL [Concomitant]
     Active Substance: BISACODYL
     Indication: Constipation prophylaxis
     Dosage: 2 OTHER
     Route: 054
     Dates: start: 20220117, end: 20220208
  47. BISACODYL [Concomitant]
     Active Substance: BISACODYL
     Dates: start: 20220215, end: 20220223
  48. FUROSEMIDE [Concomitant]
     Active Substance: FUROSEMIDE
     Route: 042
     Dates: start: 20220118, end: 20220119
  49. FUROSEMIDE [Concomitant]
     Active Substance: FUROSEMIDE
     Route: 042
     Dates: start: 20220215, end: 20220215
  50. FUROSEMIDE [Concomitant]
     Active Substance: FUROSEMIDE
     Dates: start: 20220216, end: 20220217
  51. VANCOMYCIN HYDROCHLORIDE [Concomitant]
     Active Substance: VANCOMYCIN HYDROCHLORIDE
     Indication: Clostridium difficile colitis
     Route: 048
     Dates: start: 20220118, end: 20220121
  52. NINCORT [Concomitant]
     Indication: Prophylaxis
     Dosage: 0.1% 6 G /TUBE
     Route: 048
     Dates: start: 20220119, end: 20220128
  53. DIFLUCAN [Concomitant]
     Active Substance: FLUCONAZOLE
     Indication: Pyrexia
     Dosage: 100 MG/50 ML /VIAL
     Route: 045
     Dates: start: 20220130, end: 20220203
  54. MAGNESIUM SULFATE [Concomitant]
     Active Substance: MAGNESIUM SULFATE\MAGNESIUM SULFATE HEPTAHYDRATE
     Indication: Hypomagnesaemia
     Dosage: INJ 16 MEQ/20 ML /AMP
     Dates: start: 20220123, end: 20220124
  55. MAGNESIUM SULFATE [Concomitant]
     Active Substance: MAGNESIUM SULFATE\MAGNESIUM SULFATE HEPTAHYDRATE
     Dates: start: 20220218, end: 20220218
  56. MAGNESIUM SULFATE [Concomitant]
     Active Substance: MAGNESIUM SULFATE\MAGNESIUM SULFATE HEPTAHYDRATE
     Dates: start: 20220222, end: 20220222
  57. MAGNESIUM SULFATE [Concomitant]
     Active Substance: MAGNESIUM SULFATE\MAGNESIUM SULFATE HEPTAHYDRATE
     Route: 042
     Dates: start: 20220301, end: 20220301
  58. MAGNESIUM SULFATE [Concomitant]
     Active Substance: MAGNESIUM SULFATE\MAGNESIUM SULFATE HEPTAHYDRATE
     Dosage: MAGNESIUM SULFATE INJ 16 MEQ/20 ML /AMP
     Dates: start: 20220910, end: 20220911
  59. CELEBREX [Concomitant]
     Active Substance: CELECOXIB
     Dosage: 200 MG/CAP
     Route: 048
     Dates: start: 20220123, end: 20220128
  60. MORPHINE HYDROCHLORIDE [Concomitant]
     Active Substance: MORPHINE HYDROCHLORIDE
     Indication: Back pain
     Route: 042
     Dates: start: 20000116, end: 20220207
  61. MORPHINE HYDROCHLORIDE [Concomitant]
     Active Substance: MORPHINE HYDROCHLORIDE
     Route: 042
     Dates: start: 20220117, end: 20220117
  62. HALDOL [Concomitant]
     Active Substance: HALOPERIDOL
     Indication: Prophylaxis
     Route: 030
     Dates: start: 20220118, end: 20220222
  63. TETRACYCLINE HYDROCHLORIDE [Concomitant]
     Active Substance: TETRACYCLINE HYDROCHLORIDE
     Dosage: OPH OINT 10 MG/1 G 1% 5 G /TUBE
     Dates: start: 20220124, end: 20220209
  64. WECOLI [Concomitant]
     Dosage: 1 TABLET
     Route: 048
     Dates: start: 20220126, end: 20220127
  65. TAMSULOSIN HYDROCHLORIDE [Concomitant]
     Active Substance: TAMSULOSIN HYDROCHLORIDE
     Indication: Dysuria
     Dates: start: 20220127
  66. TAMSULOSIN HYDROCHLORIDE [Concomitant]
     Active Substance: TAMSULOSIN HYDROCHLORIDE
     Indication: Benign prostatic hyperplasia
     Dosage: 0.2MG/TABLET
     Dates: start: 20220303
  67. ARCOXIA [Concomitant]
     Active Substance: ETORICOXIB
     Indication: Back pain
  68. ARCOXIA [Concomitant]
     Active Substance: ETORICOXIB
     Route: 048
     Dates: start: 20220218
  69. ETORICOXIB [Concomitant]
     Active Substance: ETORICOXIB
     Indication: Back pain
     Route: 048
     Dates: start: 20220212, end: 20220213
  70. LANSOPRAZOLE [Concomitant]
     Active Substance: LANSOPRAZOLE
     Indication: Prophylaxis
     Dates: start: 20220303
  71. TRANSAMIN [Concomitant]
     Active Substance: TRANEXAMIC ACID
  72. FLEXBUMIN [Concomitant]
     Active Substance: ALBUMIN HUMAN
     Dates: start: 20220216, end: 20220218
  73. KASCOAL [Concomitant]
  74. LIDOPAT [Concomitant]
     Indication: Back pain
     Dates: start: 20220221, end: 20220222
  75. THIAMINE TETRAHYDROFURFURYL DISULFIDE [Concomitant]
     Dates: start: 20220214
  76. THIAMINE TETRAHYDROFURFURYL DISULFIDE [Concomitant]
     Dates: start: 20220608
  77. POTASSIUM GLUCONATE [Concomitant]
     Active Substance: POTASSIUM GLUCONATE
     Indication: Hypokalaemia
     Dates: start: 20220216, end: 20220219
  78. POTASSIUM GLUCONATE [Concomitant]
     Active Substance: POTASSIUM GLUCONATE
     Dosage: K-GLU ORAL SOLN 20 MEQ/15 ML /BTL
     Route: 048
     Dates: start: 20220907, end: 20220910
  79. FENTANYL TRANSDERMAL SYSTEM [Concomitant]
     Active Substance: FENTANYL
     Indication: Back pain
     Route: 062
     Dates: start: 20220216, end: 20220413
  80. METOCLOPRAMIDE [Concomitant]
     Active Substance: METOCLOPRAMIDE
     Indication: Abdominal distension
     Dates: start: 20220211, end: 20220214
  81. LACTATED RINGERS SOLUTION [Concomitant]
     Active Substance: CALCIUM CHLORIDE\POTASSIUM CHLORIDE\SODIUM CHLORIDE\SODIUM LACTATE
     Indication: Diarrhoea
     Route: 042
     Dates: start: 20220223, end: 20220223
  82. LACTATED RINGERS SOLUTION [Concomitant]
     Active Substance: CALCIUM CHLORIDE\POTASSIUM CHLORIDE\SODIUM CHLORIDE\SODIUM LACTATE
     Indication: Hypotension
     Dosage: (HARTMANN S 500 ML /BAG)
     Dates: start: 20220912, end: 20220912
  83. UNSPECIFIED INGREDIENT [Concomitant]
     Active Substance: UNSPECIFIED INGREDIENT
     Dates: start: 20220629, end: 20220811
  84. MEGESTROL ACETATE [Concomitant]
     Active Substance: MEGESTROL ACETATE
     Indication: Weight decreased
     Route: 048
     Dates: start: 20220629
  85. BROMELAINS [Concomitant]
     Active Substance: BROMELAINS
     Indication: Haemorrhoids
     Dates: start: 20220812, end: 20220825
  86. BROMELAINS [Concomitant]
     Active Substance: BROMELAINS
     Dates: start: 20220906, end: 20220916
  87. POLICRESULEN [Concomitant]
     Active Substance: POLICRESULEN
     Indication: Haemorrhoids
     Dates: start: 20220812, end: 20220825
  88. ERGOTAMINE TARTRATE [Concomitant]
     Active Substance: ERGOTAMINE TARTRATE
     Indication: Medication overuse headache
     Dates: start: 20220812
  89. TIZANIDINE HYDROCHLORIDE [Concomitant]
     Active Substance: TIZANIDINE HYDROCHLORIDE
     Indication: Medication overuse headache
     Dates: start: 20220812
  90. ALBUMIN HUMAN [Concomitant]
     Active Substance: ALBUMIN HUMAN
     Indication: Hypoalbuminaemia
     Dates: start: 20220907, end: 20220911
  91. DEXTROSE MONOHYDRATE [Concomitant]
     Active Substance: DEXTROSE MONOHYDRATE
     Indication: Hypotension
     Dosage: DEXTSALINE 2.5%: 0.45% (OTSUKA) INJ 500 ML /BAG)
     Dates: start: 20220909, end: 20220909
  92. SODIUM CHLORIDE [Concomitant]
     Active Substance: SODIUM CHLORIDE
     Indication: Hypotension
     Dates: start: 20220909, end: 20220909
  93. MIRTAZAPINE [Concomitant]
     Active Substance: MIRTAZAPINE
     Indication: Depression
     Route: 048
     Dates: start: 20220919

REACTIONS (3)
  - Salmonella bacteraemia [Recovered/Resolved]
  - Pyrexia [Recovered/Resolved]
  - Pyrexia [Recovered/Resolved]

NARRATIVE: CASE EVENT DATE: 20220112
